FAERS Safety Report 5017261-0 (Version None)
Quarter: 2006Q2

REPORT INFORMATION
  Report Type: 
  Country: None (occurrence: None)
  Receive Date: 20060602
  Receipt Date: 20060420
  Transmission Date: 20061013
  Serious: Yes (Hospitalization)
  Sender: FDA-Public Use
  Company Number: IT-MERCK-0604ITA00030

PATIENT
  Age: 78 Year
  Sex: Male

DRUGS (10)
  1. PRIMAXIN [Suspect]
     Indication: DEVICE RELATED INFECTION
     Route: 042
     Dates: start: 20060310, end: 20060325
  2. METRONIDAZOLE [Suspect]
     Indication: POSTOPERATIVE INFECTION
     Route: 051
     Dates: start: 20060317, end: 20060325
  3. TEICOPLANIN [Suspect]
     Indication: DEVICE RELATED INFECTION
     Route: 051
     Dates: start: 20060310, end: 20060325
  4. FLUCONAZOLE [Concomitant]
     Indication: POSTOPERATIVE INFECTION
     Route: 065
     Dates: start: 20060317, end: 20060325
  5. FAT (UNSPECIFIED) [Concomitant]
     Indication: PARENTERAL NUTRITION
     Route: 065
  6. DILTIAZEM HYDROCHLORIDE [Concomitant]
     Route: 065
  7. ASPIRIN [Concomitant]
     Route: 065
  8. ESOMEPRAZOLE [Concomitant]
     Route: 065
  9. ATORVASTATIN CALCIUM [Concomitant]
     Route: 065
  10. TIMOLOL [Concomitant]
     Route: 047

REACTIONS (3)
  - BLINDNESS [None]
  - DISSOCIATION [None]
  - MIOSIS [None]
